FAERS Safety Report 15134476 (Version 1)
Quarter: 2018Q3

REPORT INFORMATION
  Report Type: Spontaneous
  Country: US (occurrence: US)
  Receive Date: 20180712
  Receipt Date: 20180712
  Transmission Date: 20181010
  Serious: Yes (Other)
  Sender: FDA-Public Use
  Company Number: US-IPSEN BIOPHARMACEUTICALS, INC.-2018-10082

PATIENT
  Age: 60 Year
  Sex: Female
  Weight: 96 kg

DRUGS (12)
  1. SOMATULINE DEPOT [Suspect]
     Active Substance: LANREOTIDE ACETATE
     Indication: PRODUCT USED FOR UNKNOWN INDICATION
     Dosage: 60 MG
     Route: 065
  2. EFFEXOR [Concomitant]
     Active Substance: VENLAFAXINE HYDROCHLORIDE
  3. VAGIFEM [Concomitant]
     Active Substance: ESTRADIOL
  4. XERMELO [Suspect]
     Active Substance: TELOTRISTAT ETHYL
     Route: 048
     Dates: start: 20180625
  5. LEVOTHYROXINE. [Concomitant]
     Active Substance: LEVOTHYROXINE
  6. MAGNESIUM [Concomitant]
     Active Substance: MAGNESIUM
  7. VALIUM [Concomitant]
     Active Substance: DIAZEPAM
  8. ESTER?C [Concomitant]
     Active Substance: CALCIUM\VITAMINS
  9. XERMELO [Suspect]
     Active Substance: TELOTRISTAT ETHYL
     Indication: CARCINOID SYNDROME
     Route: 048
     Dates: start: 20180523, end: 20180624
  10. PROBIOTIC [Concomitant]
     Active Substance: PROBIOTICS NOS
  11. MULTIVITAMIN [Concomitant]
     Active Substance: VITAMINS
  12. VITAMIN B COMPLEX [Concomitant]
     Active Substance: CYANOCOBALAMIN\DEXPANTHENOL\NIACINAMIDE\PYRIDOXINE HYDROCHLORIDE\RIBOFLAVIN 5^-PHOSPHATE SODIUM\THIAMINE HYDROCHLORIDE\VITAMIN B COMPLEX

REACTIONS (5)
  - Abdominal distension [Recovering/Resolving]
  - Dyspnoea [Recovering/Resolving]
  - Flatulence [Recovering/Resolving]
  - Nasopharyngitis [Recovering/Resolving]
  - Pulmonary congestion [Recovering/Resolving]

NARRATIVE: CASE EVENT DATE: 2018
